FAERS Safety Report 18714530 (Version 1)
Quarter: 2021Q1

REPORT INFORMATION
  Report Type: Spontaneous
  Country: CN (occurrence: CN)
  Receive Date: 20210107
  Receipt Date: 20210107
  Transmission Date: 20210419
  Serious: Yes (Other)
  Sender: FDA-Public Use
  Company Number: CN-PFIZER INC-2021006095

PATIENT
  Age: 66 Year
  Sex: Male
  Weight: 90 kg

DRUGS (2)
  1. ANZATAX (PACLITAXEL) [Suspect]
     Active Substance: PACLITAXEL
     Indication: OESOPHAGEAL MASS
     Dosage: 260 MG, 1X/DAY
     Route: 041
     Dates: start: 20200924, end: 20200924
  2. SODIUM CHLORIDE. [Concomitant]
     Active Substance: SODIUM CHLORIDE
     Indication: OESOPHAGEAL CARCINOMA
     Dosage: 100 ML, 1X/DAY
     Route: 041
     Dates: start: 20200924, end: 20200924

REACTIONS (2)
  - Gastrooesophageal reflux disease [Recovering/Resolving]
  - Nausea [Recovered/Resolved]

NARRATIVE: CASE EVENT DATE: 20200925
